FAERS Safety Report 15782117 (Version 3)
Quarter: 2019Q1

REPORT INFORMATION
  Report Type: Spontaneous
  Country: US (occurrence: US)
  Receive Date: 20190102
  Receipt Date: 20190107
  Transmission Date: 20190417
  Serious: Yes (Other)
  Sender: FDA-Public Use
  Company Number: US-GLAXOSMITHKLINE-US2018GSK233272

PATIENT
  Age: 58 Year
  Sex: Female

DRUGS (3)
  1. FLOLAN [Suspect]
     Active Substance: EPOPROSTENOL SODIUM
     Indication: PULMONARY ARTERIAL HYPERTENSION
     Dosage: 34 DF, CO
     Dates: start: 20100609
  2. FLOLAN DILUENT PH 12 SOLUTION FOR INJECTION [Suspect]
     Active Substance: GLYCINE\MANNITOL\SODIUM CHLORIDE
     Indication: PULMONARY ARTERIAL HYPERTENSION
     Dosage: UNK
     Dates: start: 20170717
  3. WARFARIN TABLET [Concomitant]
     Active Substance: WARFARIN SODIUM

REACTIONS (9)
  - Influenza [Unknown]
  - Pyrexia [Unknown]
  - Pneumonia [Unknown]
  - Dyspnoea [Unknown]
  - Headache [Unknown]
  - Decreased appetite [Unknown]
  - Influenza like illness [Unknown]
  - Cough [Unknown]
  - Chest pain [Unknown]

NARRATIVE: CASE EVENT DATE: 20181223
